FAERS Safety Report 8561750-9 (Version None)
Quarter: 2012Q3

REPORT INFORMATION
  Report Type: 
  Country: None (occurrence: None)
  Receive Date: 20120802
  Receipt Date: 20120719
  Transmission Date: 20120928
  Serious: Yes (Other)
  Sender: FDA-Public Use
  Company Number: IT-UCBSA-062741

PATIENT
  Age: 56 Year
  Sex: Female

DRUGS (6)
  1. METOCLOPRAMIDE HYDROCHLORIDE [Concomitant]
     Indication: GASTROINTESTINAL DISORDER
     Dates: start: 20090101
  2. RISPERDAL [Suspect]
     Dosage: TOTAL DAILY DOSE: 4 MG
     Route: 048
     Dates: start: 20120701, end: 20120716
  3. METHOTREXATE [Concomitant]
     Indication: B-CELL LYMPHOMA
     Dates: start: 20120101
  4. RISPERDAL [Suspect]
     Route: 048
     Dates: start: 20110801, end: 20120701
  5. CORTISONE ACETATE [Concomitant]
     Indication: CEREBRAL DISORDER
     Dates: start: 20090101
  6. KEPPRA [Suspect]
     Route: 048
     Dates: start: 20110801

REACTIONS (13)
  - ABNORMAL BEHAVIOUR [None]
  - COGNITIVE DISORDER [None]
  - CIRCADIAN RHYTHM SLEEP DISORDER [None]
  - MACULE [None]
  - DYSKINESIA [None]
  - DYSARTHRIA [None]
  - ANAL SPHINCTER ATONY [None]
  - SOMNOLENCE [None]
  - CONFUSIONAL STATE [None]
  - BRADYKINESIA [None]
  - ASTHENIA [None]
  - MEMORY IMPAIRMENT [None]
  - AMNESIA [None]
